FAERS Safety Report 5520611-X (Version None)
Quarter: 2007Q4

REPORT INFORMATION
  Report Type: 
  Country: None (occurrence: None)
  Receive Date: 20071119
  Receipt Date: 20071106
  Transmission Date: 20080405
  Serious: Yes (Other)
  Sender: FDA-Public Use
  Company Number: PL-PFIZER INC-2007087137

PATIENT
  Age: 57 Year
  Sex: Female

DRUGS (2)
  1. CHAMPIX [Suspect]
     Dates: start: 20070801, end: 20070101
  2. METIZOL [Concomitant]

REACTIONS (8)
  - CAROTID ARTERY STENOSIS [None]
  - DIARRHOEA [None]
  - EYELID OEDEMA [None]
  - HEADACHE [None]
  - NAUSEA [None]
  - NEUROLOGICAL SYMPTOM [None]
  - SINUSITIS [None]
  - VERTIGO [None]
